FAERS Safety Report 9062997 (Version 1)
Quarter: 2013Q1

REPORT INFORMATION
  Report Type: Report from Study
  Country: US (occurrence: US)
  Receive Date: 20130128
  Receipt Date: 20130128
  Transmission Date: 20140127
  Serious: No
  Sender: FDA-Public Use
  Company Number: US-ABBOTT-12P-163-0892560-00

PATIENT
  Age: 41 Year
  Sex: Female

DRUGS (16)
  1. HUMIRA 40 MG/0.8 ML PEN [Suspect]
     Indication: CROHN^S DISEASE
     Dosage: TWO DOSES
     Dates: start: 201112
  2. HUMIRA 40 MG/0.8 ML PEN [Suspect]
     Dosage: ONE DOSE
     Dates: start: 20111224
  3. HUMIRA 40 MG/0.8 ML PEN [Suspect]
     Dates: start: 20120103
  4. QVAR [Concomitant]
     Indication: PRODUCT USED FOR UNKNOWN INDICATION
     Route: 055
  5. ALBUTEROL [Concomitant]
     Indication: PRODUCT USED FOR UNKNOWN INDICATION
     Route: 055
  6. AMBIEN [Concomitant]
     Indication: PRODUCT USED FOR UNKNOWN INDICATION
     Dosage: 10 MG - AT BEDTIME
  7. CALTRATE [Concomitant]
     Indication: PRODUCT USED FOR UNKNOWN INDICATION
     Dosage: 600 +   TWICE DAILY
  8. DIAZEPAM [Concomitant]
     Indication: ANXIETY
     Dosage: 10 MG - BID TAPER OFF THE NEXT TWO MONTH
  9. KLONOPIN [Concomitant]
     Indication: ANXIETY
     Dosage: 0.5 MG - TWO DAILY AS NEEDED
  10. DULCOLAX [Concomitant]
     Indication: PRODUCT USED FOR UNKNOWN INDICATION
     Dosage: 10 MG - ONCE DAILY AS NEEDED
  11. MIRALAX [Concomitant]
     Indication: PRODUCT USED FOR UNKNOWN INDICATION
  12. NICODERM CQ [Concomitant]
     Indication: PRODUCT USED FOR UNKNOWN INDICATION
     Dosage: 21 MG PATCH - ONCE DAILY
     Route: 062
  13. PENTASA [Concomitant]
     Indication: PRODUCT USED FOR UNKNOWN INDICATION
  14. PERCOCET [Concomitant]
     Indication: PRODUCT USED FOR UNKNOWN INDICATION
     Dosage: 10/325 MG- EVERY 4 HRS AS NEEDED
  15. PREDNISONE [Concomitant]
     Indication: PRODUCT USED FOR UNKNOWN INDICATION
     Dosage: TAPERING DOWN
  16. VAPOR CIGARETTES [Concomitant]
     Indication: PRODUCT USED FOR UNKNOWN INDICATION

REACTIONS (6)
  - Balance disorder [Unknown]
  - Fall [Unknown]
  - Memory impairment [Unknown]
  - Drug dose omission [Unknown]
  - Loss of consciousness [Unknown]
  - Periorbital contusion [Unknown]
